FAERS Safety Report 11953944 (Version 1)
Quarter: 2016Q1

REPORT INFORMATION
  Report Type: Not Available
  Country: US (occurrence: US)
  Receive Date: 20160125
  Receipt Date: 20160125
  Transmission Date: 20160526
  Serious: Yes (Hospitalization)
  Sender: FDA-Public Use
  Company Number: US-ANIPHARMA-2016-US-000325

PATIENT
  Age: 31 Year
  Sex: Male

DRUGS (1)
  1. ALPRAZOLAM (NON-SPECIFIC) [Suspect]
     Active Substance: ALPRAZOLAM
     Dosage: 2 MG AT BEDTIME

REACTIONS (2)
  - Drug withdrawal syndrome [Unknown]
  - Catatonia [Unknown]
